FAERS Safety Report 8854213 (Version 1)
Quarter: 2012Q4

REPORT INFORMATION
  Report Type: Spontaneous
  Country: US (occurrence: None)
  Receive Date: 20121019
  Receipt Date: 20121019
  Transmission Date: 20130627
  Serious: Yes (Hospitalization)
  Sender: FDA-Public Use
  Company Number: None

PATIENT
  Age: 74 Year
  Sex: Female
  Weight: 54.89 kg

DRUGS (2)
  1. RITUXAN [Suspect]
     Indication: CHRONIC LYMPHOCYTIC LEUKEMIA
     Dosage: every 23 days
     Route: 042
     Dates: start: 20120821, end: 20120919
  2. TREANDA [Concomitant]

REACTIONS (6)
  - Sneezing [None]
  - Pharyngeal oedema [None]
  - Dysphagia [None]
  - Erythema [None]
  - Oedema [None]
  - Myocardial infarction [None]
